FAERS Safety Report 8911993 (Version 4)
Quarter: 2014Q2

REPORT INFORMATION
  Report Type: Spontaneous
  Country: US (occurrence: US)
  Receive Date: 20121116
  Receipt Date: 20140527
  Transmission Date: 20141212
  Serious: No
  Sender: FDA-Public Use
  Company Number: US-PFIZER INC-2012285883

PATIENT
  Age: 76 Year
  Sex: Male
  Weight: 100.68 kg

DRUGS (4)
  1. LYRICA [Suspect]
     Indication: NERVE INJURY
     Dosage: 150 MG (THREE 50MG), 1X/DAY AT NIGHT ABOUT 5 TO 10MINS BEFORE GO TO BED
     Route: 048
     Dates: start: 2011
  2. LYRICA [Suspect]
     Indication: SLEEP DISORDER
  3. ADVIL [Concomitant]
     Dosage: UNK, AS NEEDED
  4. ALEVE [Concomitant]
     Dosage: UNK, AS NEEDED

REACTIONS (6)
  - Tremor [Unknown]
  - Balance disorder [Unknown]
  - Weight increased [Not Recovered/Not Resolved]
  - Therapeutic response changed [Not Recovered/Not Resolved]
  - Dizziness [Unknown]
  - Drug ineffective [Unknown]
